FAERS Safety Report 5867420-X (Version None)
Quarter: 2008Q3

REPORT INFORMATION
  Report Type: 
  Country: None (occurrence: None)
  Receive Date: 20080902
  Receipt Date: 20080902
  Transmission Date: 20090109
  Serious: Yes (Other)
  Sender: FDA-Public Use
  Company Number: PHEH1996US06193

PATIENT
  Sex: Female
  Weight: 88.2 kg

DRUGS (8)
  1. SANDIMMUNE [Suspect]
     Route: 048
     Dates: start: 19950323
  2. PREDNISONE TAB [Concomitant]
  3. ACYCLOVIR [Concomitant]
  4. MYCELEX [Concomitant]
  5. ASPIRIN [Concomitant]
  6. NYSTATIN [Concomitant]
  7. CITRACAL (CALCIUM CITRATE) [Concomitant]
  8. PROCARDIA [Concomitant]

REACTIONS (1)
  - BASAL CELL CARCINOMA [None]
